FAERS Safety Report 11353499 (Version 1)
Quarter: 2015Q3

REPORT INFORMATION
  Report Type: Spontaneous
  Country: US (occurrence: US)
  Receive Date: 20150807
  Receipt Date: 20150807
  Transmission Date: 20151125
  Serious: No
  Sender: FDA-Public Use
  Company Number: US-JNJFOC-20150309446

PATIENT
  Age: 83 Year
  Sex: Female
  Weight: 79.38 kg

DRUGS (7)
  1. CLOPIDOGREL [Concomitant]
     Active Substance: CLOPIDOGREL BISULFATE
     Indication: BLOOD CHOLESTEROL
     Dosage: 10 YEARS
     Route: 065
  2. PRAVASTATIN [Concomitant]
     Active Substance: PRAVASTATIN\PRAVASTATIN SODIUM
     Indication: BLOOD CHOLESTEROL
     Dosage: 10 YEARS
  3. MENS ROGAINE EXTRA STRENGTH [Suspect]
     Active Substance: MINOXIDIL
     Indication: ALOPECIA
     Dosage: MORE THAN RECOMMENDED OVER A LARGER AREA
     Route: 061
  4. ZETIA [Concomitant]
     Active Substance: EZETIMIBE
     Indication: BLOOD CHOLESTEROL
     Dosage: 10 YEARS
  5. SPIRIVA [Concomitant]
     Active Substance: TIOTROPIUM BROMIDE MONOHYDRATE
     Indication: CHRONIC OBSTRUCTIVE PULMONARY DISEASE
     Dosage: 10 YEARS
     Route: 065
  6. MENS ROGAINE EXTRA STRENGTH [Suspect]
     Active Substance: MINOXIDIL
     Route: 061
  7. ENALAPRIL [Concomitant]
     Active Substance: ENALAPRIL
     Indication: COAGULOPATHY
     Dosage: 10 YEARS

REACTIONS (6)
  - Dandruff [Not Recovered/Not Resolved]
  - Extra dose administered [Unknown]
  - Product use issue [Unknown]
  - Skin exfoliation [Not Recovered/Not Resolved]
  - Wrong patient received medication [Unknown]
  - Dry skin [Not Recovered/Not Resolved]
